FAERS Safety Report 5773204-3 (Version None)
Quarter: 2008Q2

REPORT INFORMATION
  Report Type: 
  Country: None (occurrence: None)
  Receive Date: 20080613
  Receipt Date: 20080613
  Transmission Date: 20081010
  Serious: Yes (Life-Threatening)
  Sender: FDA-Public Use
  Company Number: None

PATIENT
  Age: 29 Year
  Sex: Female
  Weight: 81 kg

DRUGS (3)
  1. SUCCINYLCHOLINE CHLORIDE [Suspect]
     Indication: REMOVAL OF FOREIGN BODY
     Dosage: OPERATIVE PROCEDUR IV BOLUS
     Route: 040
     Dates: start: 20080605, end: 20080605
  2. MIDAZOLAM HCL [Concomitant]
  3. FENTANYL-100 [Concomitant]

REACTIONS (1)
  - HYPERTHERMIA MALIGNANT [None]
